FAERS Safety Report 5098856-5 (Version None)
Quarter: 2006Q3

REPORT INFORMATION
  Report Type: 
  Country: None (occurrence: None)
  Receive Date: 20060907
  Receipt Date: 20060830
  Transmission Date: 20061208
  Serious: Yes (Life-Threatening)
  Sender: FDA-Public Use
  Company Number: JP-ROCHE-461830

PATIENT
  Sex: Male

DRUGS (1)
  1. ROCEPHIN [Suspect]
     Indication: BACTERIAL INFECTION
     Dosage: ROUTE REPORTED AS: INTRAVENOUS (NOT OTHERWISE SPECIFIED).
     Route: 042

REACTIONS (1)
  - THROMBOTIC THROMBOCYTOPENIC PURPURA [None]
